FAERS Safety Report 5160243-9 (Version None)
Quarter: 2006Q4

REPORT INFORMATION
  Report Type: 
  Country: None (occurrence: None)
  Receive Date: 20061129
  Receipt Date: 20061107
  Transmission Date: 20070319
  Serious: Yes (Hospitalization, Other)
  Sender: FDA-Public Use
  Company Number: US-GLAXOSMITHKLINE-A0623961B

PATIENT
  Sex: Male

DRUGS (3)
  1. VALTREX [Suspect]
     Indication: ANTIVIRAL PROPHYLAXIS
     Dosage: 500MG PER DAY
     Dates: start: 20060412, end: 20060516
  2. IMITREX [Concomitant]
     Indication: MIGRAINE
     Dates: start: 20051205
  3. PRENATAL VITAMINS [Concomitant]

REACTIONS (8)
  - CONGENITAL HERPES SIMPLEX INFECTION [None]
  - DRUG EXPOSURE DURING PREGNANCY [None]
  - DRUG INEFFECTIVE [None]
  - HERPES SIMPLEX [None]
  - LUNG INFILTRATION [None]
  - OXYGEN SATURATION DECREASED [None]
  - PALLOR [None]
  - VIRUS CULTURE POSITIVE [None]
